FAERS Safety Report 4787763-0 (Version None)
Quarter: 2005Q3

REPORT INFORMATION
  Report Type: 
  Country: None (occurrence: None)
  Receive Date: 20050914
  Receipt Date: 20050119
  Transmission Date: 20060218
  Serious: Yes (Death, Hospitalization)
  Sender: FDA-Public Use
  Company Number: 163-20785-05010382

PATIENT
  Age: 57 Year
  Sex: Male

DRUGS (5)
  1. THALOMID [Suspect]
     Indication: RENAL CELL CARCINOMA STAGE UNSPECIFIED
     Dosage: 400 MG, DAILY, ORAL
     Route: 048
     Dates: start: 20011005, end: 20030101
  2. THALOMID [Suspect]
  3. INTERFERON (INTERFERON) [Concomitant]
  4. CAPECITABINE (CAPECITABINE) [Concomitant]
  5. GEMCITABINE (GEMCITABINE) [Concomitant]

REACTIONS (3)
  - CONSTIPATION [None]
  - DISCOMFORT [None]
  - DISEASE PROGRESSION [None]
